FAERS Safety Report 5834878-1 (Version None)
Quarter: 2008Q3

REPORT INFORMATION
  Report Type: 
  Country: None (occurrence: None)
  Receive Date: 20080806
  Receipt Date: 20080728
  Transmission Date: 20090109
  Serious: Yes (Death)
  Sender: FDA-Public Use
  Company Number: GB-RANBAXY-2008RR-16795

PATIENT

DRUGS (2)
  1. ACETAMINOPHEN [Suspect]
     Route: 065
  2. NUROFEN [Suspect]
     Indication: HEADACHE
     Dosage: UNK
     Route: 065
     Dates: start: 20061022

REACTIONS (3)
  - ACCIDENTAL OVERDOSE [None]
  - DEATH [None]
  - HEPATIC FAILURE [None]
